FAERS Safety Report 14239536 (Version 1)
Quarter: 2017Q4

REPORT INFORMATION
  Report Type: Spontaneous
  Country: US (occurrence: US)
  Receive Date: 20171128
  Receipt Date: 20171128
  Transmission Date: 20180321
  Serious: Yes (Death)
  Sender: FDA-Public Use
  Company Number: None

PATIENT
  Sex: Male

DRUGS (1)
  1. HALDOL [Suspect]
     Active Substance: HALOPERIDOL

REACTIONS (3)
  - Dementia Alzheimer^s type [None]
  - Disorientation [None]
  - Unresponsive to stimuli [None]

NARRATIVE: CASE EVENT DATE: 20170607
